FAERS Safety Report 9165996 (Version 1)
Quarter: 2013Q1

REPORT INFORMATION
  Report Type: Spontaneous
  Country: US (occurrence: US)
  Receive Date: 20130315
  Receipt Date: 20130315
  Transmission Date: 20140127
  Serious: No
  Sender: FDA-Public Use
  Company Number: US-ASTRAZENECA-2013SE06753

PATIENT
  Age: 64 Year
  Sex: Female

DRUGS (5)
  1. SYMBICORT PMDI [Suspect]
     Indication: CHRONIC OBSTRUCTIVE PULMONARY DISEASE
     Dosage: 80 MCG/4.5 MCG , UNKNOWN
     Route: 055
  2. SYMBICORT PMDI [Suspect]
     Indication: CHRONIC OBSTRUCTIVE PULMONARY DISEASE
     Dosage: TAKING ONE PUFF INSTEAD OF TWO, UNKNOWN
     Route: 055
  3. PULMICORT RESPULES [Suspect]
     Route: 055
  4. PROVENTIL [Suspect]
     Route: 065
  5. RESCUE INHALERS [Concomitant]

REACTIONS (9)
  - Dyspnoea [Unknown]
  - Visual impairment [Unknown]
  - Eye pruritus [Unknown]
  - Eye irritation [Unknown]
  - Back disorder [Unknown]
  - Stress [Unknown]
  - Malaise [Unknown]
  - Intentional drug misuse [Unknown]
  - Drug dose omission [Unknown]
